FAERS Safety Report 6322003-2 (Version None)
Quarter: 2009Q3

REPORT INFORMATION
  Report Type: 
  Country: None (occurrence: None)
  Receive Date: 20090812
  Receipt Date: 20090424
  Transmission Date: 20100115
  Serious: No
  Sender: FDA-Public Use
  Company Number: WAES 0904USA03966

PATIENT

DRUGS (3)
  1. ISENTRESS [Suspect]
  2. TRUVADA [Concomitant]
  3. DARUNAVIR [Concomitant]

REACTIONS (1)
  - WEIGHT INCREASED [None]
